FAERS Safety Report 5477593-9 (Version None)
Quarter: 2007Q4

REPORT INFORMATION
  Report Type: 
  Country: None (occurrence: None)
  Receive Date: 20071002
  Receipt Date: 20070528
  Transmission Date: 20080405
  Serious: Yes (Other)
  Sender: FDA-Public Use
  Company Number: 16380

PATIENT
  Age: 50 Year
  Sex: Female
  Weight: 63.5036 kg

DRUGS (9)
  1. METHOTREXATE [Suspect]
     Indication: RHEUMATOID ARTHRITIS
     Dosage: 25 MG WEEKLY; IM
     Route: 030
     Dates: start: 20021101
  2. REMICADE [Concomitant]
  3. PANTOPRAZOLE SODIUM [Concomitant]
  4. FOLIC ACID [Concomitant]
  5. DICLOFENAC SODIUM [Concomitant]
  6. TYLENOL ARTHRITIS [Concomitant]
  7. CALCIUM W/MAGNESIUM [Concomitant]
  8. VITAMIN A AND D. [Concomitant]
  9. SLOW FE [Concomitant]

REACTIONS (2)
  - FOOT FRACTURE [None]
  - STRESS FRACTURE [None]
